FAERS Safety Report 18905885 (Version 13)
Quarter: 2024Q3

REPORT INFORMATION
  Report Type: Report from Study
  Country: US (occurrence: US)
  Receive Date: 20210217
  Receipt Date: 20240727
  Transmission Date: 20241017
  Serious: Yes (Hospitalization, Other)
  Sender: TAKEDA
  Company Number: US-SHIRE-US201942222AA

PATIENT
  Age: 66 Year
  Sex: Female

DRUGS (2)
  1. HUMAN IMMUNOGLOBULIN G [Suspect]
     Active Substance: HUMAN IMMUNOGLOBULIN G
     Indication: Primary immunodeficiency syndrome
     Dosage: UNK
     Route: 042
  2. HUMAN IMMUNOGLOBULIN G [Suspect]
     Active Substance: HUMAN IMMUNOGLOBULIN G
     Indication: Immunodeficiency common variable

REACTIONS (25)
  - Neuropathy peripheral [Unknown]
  - Diabetes mellitus [Unknown]
  - Infusion site bruising [Unknown]
  - Urinary tract infection [Unknown]
  - Nasopharyngitis [Unknown]
  - Peripheral swelling [Unknown]
  - Arthritis [Unknown]
  - Joint swelling [Unknown]
  - Bone disorder [Unknown]
  - Renal disorder [Unknown]
  - Fall [Unknown]
  - Blood potassium increased [Unknown]
  - Uterine polyp [Unknown]
  - Chronic sinusitis [Unknown]
  - Liver disorder [Unknown]
  - Liver function test increased [Unknown]
  - Sinusitis [Unknown]
  - Hypoaesthesia [Unknown]
  - Influenza [Unknown]
  - Pain [Unknown]
  - Oropharyngeal pain [Unknown]
  - Rash erythematous [Unknown]
  - Dyspnoea [Unknown]
  - Arthralgia [Unknown]
  - Fatigue [Unknown]

NARRATIVE: CASE EVENT DATE: 20240405
